FAERS Safety Report 15812731 (Version 1)
Quarter: 2019Q1

REPORT INFORMATION
  Report Type: Spontaneous
  Country: US (occurrence: US)
  Receive Date: 20190104
  Receipt Date: 20190104
  Transmission Date: 20190417
  Serious: No
  Sender: FDA-Public Use
  Company Number: None

PATIENT

DRUGS (2)
  1. TERAZOSIN HCL TERAZOSIN [Suspect]
     Active Substance: TERAZOSIN HYDROCHLORIDE
     Route: 048
  2. TERAZOSIN HCL TERAZOSIN [Suspect]
     Active Substance: TERAZOSIN HYDROCHLORIDE
     Route: 048

REACTIONS (1)
  - Product dispensing error [None]
